FAERS Safety Report 21941955 (Version 1)
Quarter: 2023Q1

REPORT INFORMATION
  Report Type: Report from Study
  Country: US (occurrence: US)
  Receive Date: 20230202
  Receipt Date: 20230202
  Transmission Date: 20230417
  Serious: No
  Sender: FDA-Public Use
  Company Number: US-EXELIXIS-CABO-22056228

PATIENT
  Sex: Male

DRUGS (14)
  1. CABOMETYX [Suspect]
     Active Substance: CABOZANTINIB S-MALATE
     Indication: Renal cell carcinoma
     Dosage: 40 MG
     Dates: start: 202202
  2. CABOMETYX [Suspect]
     Active Substance: CABOZANTINIB S-MALATE
     Dosage: 60 MG, QD
     Dates: start: 20220803
  3. ATORVASTATIN [Concomitant]
     Active Substance: ATORVASTATIN
     Dosage: UNK
  4. ACETAMINOPHEN\HYDROCODONE [Concomitant]
     Active Substance: ACETAMINOPHEN\HYDROCODONE
     Dosage: UNK
  5. VITAMINS [Concomitant]
     Active Substance: VITAMINS
     Dosage: UNK
  6. OXYBUTYNIN [Concomitant]
     Active Substance: OXYBUTYNIN
     Dosage: UNK
  7. LEVOTHYROXINE [Concomitant]
     Active Substance: LEVOTHYROXINE
     Dosage: UNK
  8. OMEGA-3 ACIDS [Concomitant]
     Active Substance: OMEGA-3 FATTY ACIDS
     Dosage: UNK
  9. TRAZODONE [Concomitant]
     Active Substance: TRAZODONE HYDROCHLORIDE
     Dosage: UNK
  10. TRIAMCINOLONE [Concomitant]
     Active Substance: TRIAMCINOLONE
     Dosage: UNK
  11. DIPHENHYDRAMINE [Concomitant]
     Active Substance: DIPHENHYDRAMINE
     Dosage: UNK
  12. DOCUSATE SODIUM [Concomitant]
     Active Substance: DOCUSATE SODIUM
     Dosage: UNK
  13. VITAMIN D3 [Concomitant]
     Active Substance: CHOLECALCIFEROL
     Dosage: UNK
  14. TAMSULOSIN [Concomitant]
     Active Substance: TAMSULOSIN
     Dosage: UNK

REACTIONS (12)
  - Hypoaesthesia [Not Recovered/Not Resolved]
  - Rash macular [Not Recovered/Not Resolved]
  - Fatigue [Not Recovered/Not Resolved]
  - Decreased appetite [Not Recovered/Not Resolved]
  - Dry mouth [Not Recovered/Not Resolved]
  - Blood pressure increased [Recovering/Resolving]
  - Diarrhoea [Not Recovered/Not Resolved]
  - Constipation [Not Recovered/Not Resolved]
  - Stomatitis [Not Recovered/Not Resolved]
  - Taste disorder [Not Recovered/Not Resolved]
  - Central nervous system lesion [Unknown]
  - Abdominal discomfort [Not Recovered/Not Resolved]
